FAERS Safety Report 6807277-3 (Version None)
Quarter: 2010Q2

REPORT INFORMATION
  Report Type: 
  Country: None (occurrence: None)
  Receive Date: 20100628
  Receipt Date: 20100628
  Transmission Date: 20101027
  Serious: Yes (Disabling)
  Sender: FDA-Public Use
  Company Number: None

PATIENT
  Sex: Male
  Weight: 87.9 kg

DRUGS (1)
  1. GEMCITABINE (GEMZAR) [Suspect]
     Indication: PANCREATIC CARCINOMA
     Dosage: 2060MG (1000MG/M2) WEEKLY DAY 1,8,15 IV
     Route: 042
     Dates: start: 20100316, end: 20100524

REACTIONS (3)
  - OEDEMA PERIPHERAL [None]
  - PERIPHERAL ISCHAEMIA [None]
  - RAYNAUD'S PHENOMENON [None]
